FAERS Safety Report 7259513-X (Version None)
Quarter: 2011Q1

REPORT INFORMATION
  Report Type: 
  Country: None (occurrence: None)
  Receive Date: 20110129
  Receipt Date: 20100302
  Transmission Date: 20110831
  Serious: No
  Sender: FDA-Public Use
  Company Number: US-PFIZER INC-2010027868

PATIENT
  Sex: Female
  Weight: 114 kg

DRUGS (7)
  1. VISTARIL [Concomitant]
     Dosage: UNK
  2. TRAZODONE [Concomitant]
     Dosage: UNK
  3. ATIVAN [Concomitant]
     Dosage: UNK
  4. RELPAX [Suspect]
     Indication: MIGRAINE
     Dosage: 40 MG, UNK
     Route: 048
  5. NEURONTIN [Concomitant]
     Dosage: UNK
  6. WELLBUTRIN [Concomitant]
     Dosage: UNK
  7. GEODON [Concomitant]
     Dosage: UNK

REACTIONS (1)
  - MIGRAINE [None]
